FAERS Safety Report 9144244 (Version 2)
Quarter: 2013Q2

REPORT INFORMATION
  Report Type: Spontaneous
  Country: IT (occurrence: IT)
  Receive Date: 20130306
  Receipt Date: 20130411
  Transmission Date: 20140414
  Serious: Yes (Other)
  Sender: FDA-Public Use
  Company Number: IT-ROCHE-1196710

PATIENT
  Age: 55 Year
  Sex: Female

DRUGS (6)
  1. ROCEFIN [Suspect]
     Indication: TRACHEOBRONCHITIS
     Route: 030
     Dates: start: 20130111, end: 20130117
  2. AUGMENTIN [Suspect]
     Indication: TRACHEOBRONCHITIS
     Route: 048
     Dates: start: 20130107, end: 20130117
  3. LERCADIP [Concomitant]
     Indication: HYPERTENSION
     Route: 065
  4. CARDIOASPIRIN [Concomitant]
     Indication: CEREBROVASCULAR ACCIDENT PROPHYLAXIS
     Route: 048
  5. NIMOTOP [Concomitant]
     Route: 048
  6. LOBIDIUR [Concomitant]
     Route: 048

REACTIONS (4)
  - Pruritus [Recovered/Resolved]
  - Pruritus [Recovered/Resolved]
  - Urticaria [Recovered/Resolved]
  - Pruritus [Recovered/Resolved]
